FAERS Safety Report 5858145-5 (Version None)
Quarter: 2008Q3

REPORT INFORMATION
  Report Type: 
  Country: None (occurrence: None)
  Receive Date: 20080826
  Receipt Date: 20080822
  Transmission Date: 20090109
  Serious: Yes (Hospitalization)
  Sender: FDA-Public Use
  Company Number: A0688719A

PATIENT
  Age: 48 Year
  Sex: Male
  Weight: 119.1 kg

DRUGS (7)
  1. AVANDIA [Suspect]
     Dosage: 4MG TWICE PER DAY
     Route: 048
     Dates: start: 20060101, end: 20070101
  2. ACTOS [Concomitant]
     Dates: start: 20060101, end: 20070101
  3. HUMALOG [Concomitant]
     Dates: start: 19970101
  4. LANTUS [Concomitant]
     Dates: start: 20060101
  5. NEURONTIN [Concomitant]
  6. TOPROL-XL [Concomitant]
  7. GLUCOPHAGE [Concomitant]

REACTIONS (2)
  - CARDIAC FAILURE CONGESTIVE [None]
  - HEART INJURY [None]
